FAERS Safety Report 23718726 (Version 1)
Quarter: 2024Q2

REPORT INFORMATION
  Report Type: Report from Study
  Country: US (occurrence: US)
  Receive Date: 20240408
  Receipt Date: 20240408
  Transmission Date: 20240716
  Serious: Yes (Other)
  Sender: FDA-Public Use
  Company Number: US-Merck Healthcare KGaA-2024017854

PATIENT
  Sex: Female

DRUGS (3)
  1. MAVENCLAD [Suspect]
     Active Substance: CLADRIBINE
     Indication: Multiple sclerosis
     Dosage: YEAR ONE MONTH ONE THERAPY
     Route: 048
     Dates: start: 20230202
  2. MAVENCLAD [Suspect]
     Active Substance: CLADRIBINE
     Dosage: YEAR ONE MONTH TWO THERAPY
     Route: 048
     Dates: start: 20230302
  3. XARELTO [Suspect]
     Active Substance: RIVAROXABAN
     Indication: Thrombosis

REACTIONS (9)
  - Viral diarrhoea [Unknown]
  - Diarrhoea haemorrhagic [Recovering/Resolving]
  - Pyrexia [Recovering/Resolving]
  - Illness [Unknown]
  - Chills [Unknown]
  - Hyperhidrosis [Unknown]
  - Headache [Unknown]
  - Neck pain [Unknown]
  - Haematochezia [Unknown]
